FAERS Safety Report 6301969-0 (Version None)
Quarter: 2009Q3

REPORT INFORMATION
  Report Type: 
  Country: None (occurrence: None)
  Receive Date: 20090807
  Receipt Date: 20090803
  Transmission Date: 20100115
  Serious: Yes (Death, Hospitalization, Other)
  Sender: FDA-Public Use
  Company Number: PHHY2009US32216

PATIENT
  Age: 14 Month
  Sex: Male

DRUGS (4)
  1. CYCLOSPORINE [Suspect]
     Indication: LIVER TRANSPLANT
     Dosage: UNK
  2. PREDNISONE TAB [Suspect]
     Indication: LIVER TRANSPLANT
  3. AZATHIOPRINE [Suspect]
     Indication: LIVER TRANSPLANT
  4. ANTITHYMOCYTE IMMUNOGLOBULIN [Concomitant]
     Indication: LIVER TRANSPLANT

REACTIONS (29)
  - ABDOMINAL DISTENSION [None]
  - ASCITES [None]
  - BILE DUCT CANCER [None]
  - BILE DUCT STENOSIS [None]
  - BILE OUTPUT ABNORMAL [None]
  - BILIARY DRAINAGE [None]
  - CATHETER PLACEMENT [None]
  - CHOLANGITIS [None]
  - CHRONIC HEPATIC FAILURE [None]
  - EPSTEIN-BARR VIRUS ANTIGEN POSITIVE [None]
  - EPSTEIN-BARR VIRUS INFECTION [None]
  - GASTRIC BYPASS [None]
  - GASTRIC PERFORATION [None]
  - HEPATIC NECROSIS [None]
  - HEPATIC NEOPLASM [None]
  - HEPATORENAL SYNDROME [None]
  - LIVER TRANSPLANT [None]
  - LIVER TRANSPLANT REJECTION [None]
  - LYMPHATIC SYSTEM NEOPLASM [None]
  - LYMPHOMA [None]
  - METASTASES TO CHEST WALL [None]
  - METASTATIC GASTRIC CANCER [None]
  - NODULE [None]
  - PLEURAL EFFUSION [None]
  - PYREXIA [None]
  - RESPIRATORY DISTRESS [None]
  - SEPSIS [None]
  - STENT PLACEMENT [None]
  - TRANSPLANT REJECTION [None]
